FAERS Safety Report 24813926 (Version 1)
Quarter: 2025Q1

REPORT INFORMATION
  Report Type: Spontaneous
  Country: KR (occurrence: KR)
  Receive Date: 20250107
  Receipt Date: 20250107
  Transmission Date: 20250408
  Serious: Yes (Hospitalization)
  Sender: Harrow Health
  Company Number: KR-IMP-2024001187

PATIENT
  Age: 54 Year
  Sex: Male

DRUGS (35)
  1. VIGAMOX [Suspect]
     Active Substance: MOXIFLOXACIN HYDROCHLORIDE
     Indication: Product used for unknown indication
     Route: 065
     Dates: start: 20241013
  2. VIGAMOX [Suspect]
     Active Substance: MOXIFLOXACIN HYDROCHLORIDE
     Indication: Product used for unknown indication
     Route: 065
     Dates: start: 20241105
  3. LUCENTIS [Suspect]
     Active Substance: RANIBIZUMAB
     Indication: Choroidal neovascularisation
     Route: 065
     Dates: start: 20210812, end: 20210812
  4. LUCENTIS [Suspect]
     Active Substance: RANIBIZUMAB
     Indication: Choroidal neovascularisation
     Route: 065
     Dates: start: 20210929, end: 20210929
  5. LUCENTIS [Suspect]
     Active Substance: RANIBIZUMAB
     Indication: Choroidal neovascularisation
     Route: 065
     Dates: start: 20211115, end: 20211115
  6. LUCENTIS [Suspect]
     Active Substance: RANIBIZUMAB
     Indication: Choroidal neovascularisation
     Route: 065
     Dates: start: 20211213, end: 20211213
  7. LUCENTIS [Suspect]
     Active Substance: RANIBIZUMAB
     Indication: Choroidal neovascularisation
     Route: 065
     Dates: start: 20241017, end: 20241017
  8. LUCENTIS [Suspect]
     Active Substance: RANIBIZUMAB
     Indication: Choroidal neovascularisation
     Route: 065
     Dates: start: 20241105, end: 20241105
  9. LUCENTIS [Suspect]
     Active Substance: RANIBIZUMAB
     Indication: Choroidal neovascularisation
     Route: 065
     Dates: start: 20241105, end: 20241105
  10. LUCENTIS PREFILLED SYRINGE (DEVICE) (RANIBIZUMAB) [Concomitant]
     Indication: Product used for unknown indication
  11. Homapine [Concomitant]
     Indication: Product used for unknown indication
     Dates: start: 20241013
  12. OCUFLOX [Concomitant]
     Active Substance: OFLOXACIN
     Indication: Product used for unknown indication
     Dates: start: 20241014
  13. BSS PLUS [Concomitant]
     Active Substance: CALCIUM CHLORIDE\DEXTROSE\MAGNESIUM CHLORIDE\OXIGLUTATIONE\POTASSIUM CHLORIDE\SODIUM BICARBONATE\SOD
     Indication: Product used for unknown indication
  14. MINERAL OIL EMULSION\PETROLATUM [Concomitant]
     Active Substance: MINERAL OIL EMULSION\PETROLATUM
     Indication: Product used for unknown indication
     Dates: start: 20241014
  15. Kukje hyaluronic acid [Concomitant]
     Indication: Product used for unknown indication
     Dates: start: 20201014
  16. BSS PLUS [Concomitant]
     Active Substance: CALCIUM CHLORIDE\DEXTROSE\MAGNESIUM CHLORIDE\OXIGLUTATIONE\POTASSIUM CHLORIDE\SODIUM BICARBONATE\SOD
     Indication: Product used for unknown indication
     Dates: start: 20241014
  17. BROMFENAC SODIUM [Concomitant]
     Active Substance: BROMFENAC SODIUM
     Indication: Product used for unknown indication
     Dates: start: 20241015
  18. LOTEPRO [Concomitant]
     Indication: Product used for unknown indication
     Dates: start: 20241017
  19. YAMATETAN [Concomitant]
     Indication: Product used for unknown indication
     Dates: start: 20241017
  20. Daihan isotonic sodium chloride [Concomitant]
     Indication: Product used for unknown indication
     Dates: start: 20241013
  21. K DION [Concomitant]
     Indication: Product used for unknown indication
     Dates: start: 20241013
  22. PLASMA SOLUTION A [Concomitant]
     Indication: Product used for unknown indication
     Dates: start: 20241014
  23. PALOSET [Concomitant]
     Indication: Product used for unknown indication
     Dates: start: 20241014
  24. Daihan isotonic sodium chloride [Concomitant]
     Indication: Product used for unknown indication
     Dates: start: 20241014
  25. SUPRANE [Concomitant]
     Active Substance: DESFLURANE
     Indication: Product used for unknown indication
     Dates: start: 20241014
  26. MOBINUL [Concomitant]
     Indication: Product used for unknown indication
     Dates: start: 20241014
  27. ROCURONIUM BROMIDE [Concomitant]
     Active Substance: ROCURONIUM BROMIDE
     Indication: Product used for unknown indication
     Dates: start: 20241014
  28. ULTIFEN [Concomitant]
     Indication: Product used for unknown indication
     Dates: start: 20241014
  29. TAMCETON [Concomitant]
     Indication: Product used for unknown indication
     Dates: start: 20241014
  30. BETAMETHASONE SODIUM PHOSPHATE [Concomitant]
     Active Substance: BETAMETHASONE SODIUM PHOSPHATE
     Indication: Product used for unknown indication
     Dates: start: 20241014
  31. PHENYLEPHRINE HYDROCHLORIDE\TROPICAMIDE [Concomitant]
     Active Substance: PHENYLEPHRINE HYDROCHLORIDE\TROPICAMIDE
     Indication: Product used for unknown indication
     Dates: start: 20241105
  32. PARACAINE [Concomitant]
     Active Substance: PROPARACAINE HYDROCHLORIDE
     Indication: Product used for unknown indication
     Dates: start: 20241105
  33. santen mydrin- p opthalmic solution [Concomitant]
     Indication: Product used for unknown indication
  34. PHENYLEPHRINE HYDROCHLORIDE [Concomitant]
     Active Substance: PHENYLEPHRINE HYDROCHLORIDE
     Indication: Product used for unknown indication
  35. Hyaluronmax [Concomitant]
     Indication: Product used for unknown indication

REACTIONS (2)
  - Retinal detachment [Recovering/Resolving]
  - Concomitant disease aggravated [Recovering/Resolving]

NARRATIVE: CASE EVENT DATE: 20241013
